FAERS Safety Report 9506376 (Version 1)
Quarter: 2013Q1

REPORT INFORMATION
  Report Type: Spontaneous
  Country: US (occurrence: None)
  Receive Date: 20130305
  Receipt Date: 20130305
  Transmission Date: 20140127
  Serious: Yes (Other)
  Sender: FDA-Public Use
  Company Number: 163-21880-12051253

PATIENT
  Age: 68 Year
  Sex: Female
  Weight: 57.15 kg

DRUGS (9)
  1. REVLIMID (LENALIDOMIDE) [Suspect]
     Indication: MYELODYSPLASTIC SYNDROME
     Route: 048
     Dates: start: 201503
  2. ZOLOFT (SERTRALINE HYDROCHLORIDE) [Concomitant]
  3. AMBIEN (ZOLPIDEM TARTRATE) [Concomitant]
  4. POTASSISUM [Concomitant]
  5. LASIX (FUROSEMIDE) [Concomitant]
  6. TOPROL (METOPROLOL TARTRATE) [Concomitant]
  7. ACYCLOVIR [Concomitant]
  8. GLYBURIDE (GLIBENCLAMIDE) [Concomitant]
  9. METFORMIN [Concomitant]

REACTIONS (1)
  - Thrombocytopenia [None]
